FAERS Safety Report 21252925 (Version 3)
Quarter: 2022Q3

REPORT INFORMATION
  Report Type: Spontaneous
  Country: CN (occurrence: CN)
  Receive Date: 20220825
  Receipt Date: 20220906
  Transmission Date: 20221027
  Serious: Yes (Life-Threatening, Other)
  Sender: FDA-Public Use
  Company Number: CN-PFIZER INC-PV202200047182

PATIENT
  Age: 41 Year
  Sex: Female

DRUGS (25)
  1. CIBINQO [Interacting]
     Active Substance: ABROCITINIB
     Indication: Dermatitis atopic
     Dosage: 100 MG, 1X/DAY
     Route: 048
     Dates: start: 20220818, end: 20220820
  2. CIBINQO [Interacting]
     Active Substance: ABROCITINIB
     Indication: Dermatitis allergic
  3. CIBINQO [Interacting]
     Active Substance: ABROCITINIB
     Indication: Pruritus
  4. MIZOLASTINE [Interacting]
     Active Substance: MIZOLASTINE
     Indication: Dermatitis allergic
     Dosage: 10 MG, 1X/DAY, 10 MG*7/10 MG
     Dates: start: 20220818, end: 20220820
  5. MIZOLASTINE [Interacting]
     Active Substance: MIZOLASTINE
     Indication: Dermatitis atopic
  6. MIZOLASTINE [Interacting]
     Active Substance: MIZOLASTINE
     Indication: Skin infection
  7. HYALURONIC ACID [Concomitant]
     Active Substance: HYALURONIC ACID
     Indication: Erythema
     Dosage: UNK, A HYALURONIC ACID MASK
     Dates: start: 20220820
  8. HYALURONIC ACID [Concomitant]
     Active Substance: HYALURONIC ACID
     Indication: Pruritus
  9. SOLU-MEDROL [Concomitant]
     Active Substance: METHYLPREDNISOLONE SODIUM SUCCINATE
     Indication: Dermatitis allergic
     Dosage: 40 MG, DAILY
     Route: 041
     Dates: start: 20220818
  10. SOLU-MEDROL [Concomitant]
     Active Substance: METHYLPREDNISOLONE SODIUM SUCCINATE
     Indication: Dermatitis atopic
  11. SOLU-MEDROL [Concomitant]
     Active Substance: METHYLPREDNISOLONE SODIUM SUCCINATE
     Indication: Skin infection
  12. SODIUM THIOSULFATE [Concomitant]
     Active Substance: SODIUM THIOSULFATE
     Indication: Dermatitis allergic
     Dosage: UNK, 100 ML + SOLU-MEDROL 40 MG IVGTT/D, FOR 2 DAYS
     Route: 041
     Dates: start: 20220818
  13. SODIUM THIOSULFATE [Concomitant]
     Active Substance: SODIUM THIOSULFATE
     Indication: Dermatitis atopic
     Dosage: UNK, 250 ML + CLINDAMYCIN PHOSPHATE INJECTION 1.2 G/D
     Dates: start: 20220818
  14. SODIUM THIOSULFATE [Concomitant]
     Active Substance: SODIUM THIOSULFATE
     Indication: Skin infection
  15. CLINDAMYCIN PHOSPHATE [Concomitant]
     Active Substance: CLINDAMYCIN PHOSPHATE
     Indication: Dermatitis allergic
     Dosage: 1.2 G, DAILY
     Dates: start: 20220818
  16. CLINDAMYCIN PHOSPHATE [Concomitant]
     Active Substance: CLINDAMYCIN PHOSPHATE
     Indication: Dermatitis atopic
  17. CLINDAMYCIN PHOSPHATE [Concomitant]
     Active Substance: CLINDAMYCIN PHOSPHATE
     Indication: Skin infection
  18. MOMETASONE [Concomitant]
     Active Substance: MOMETASONE
     Indication: Dermatitis allergic
     Dosage: 1X/DAY,  5 G*4 TUBES, EXTERNAL USE, 0.5 QD
     Route: 061
     Dates: start: 20220818
  19. MOMETASONE [Concomitant]
     Active Substance: MOMETASONE
     Indication: Dermatitis atopic
  20. MOMETASONE [Concomitant]
     Active Substance: MOMETASONE
     Indication: Skin infection
  21. SODIUM CHLORIDE [Concomitant]
     Active Substance: SODIUM CHLORIDE
     Indication: Dermatitis allergic
     Dosage: 100 ML, DAILY
     Dates: start: 20220818
  22. SODIUM CHLORIDE [Concomitant]
     Active Substance: SODIUM CHLORIDE
     Indication: Dermatitis atopic
     Dosage: 250 ML, 1X/DAY
     Dates: start: 20220818
  23. SODIUM CHLORIDE [Concomitant]
     Active Substance: SODIUM CHLORIDE
     Indication: Skin infection
  24. ESTAZOLAM [Concomitant]
     Active Substance: ESTAZOLAM
     Indication: Pruritus
     Dosage: UNK
     Dates: start: 20220816
  25. CHLORPHENIRAMINE MALEATE [Concomitant]
     Active Substance: CHLORPHENIRAMINE MALEATE
     Indication: Pruritus
     Dosage: UNK
     Dates: start: 20220816

REACTIONS (13)
  - Drug interaction [Unknown]
  - Brain death [Unknown]
  - Coma [Unknown]
  - Cardiac arrest [Unknown]
  - Respiratory failure [Unknown]
  - Depressed level of consciousness [Unknown]
  - Unresponsive to stimuli [Unknown]
  - Respiratory arrest [Unknown]
  - Pulse absent [Unknown]
  - Pallor [Unknown]
  - Cyanosis [Unknown]
  - Blood pressure decreased [Unknown]
  - Pupillary reflex impaired [Unknown]

NARRATIVE: CASE EVENT DATE: 20220801
